FAERS Safety Report 8564066-X (Version None)
Quarter: 2012Q3

REPORT INFORMATION
  Report Type: 
  Country: None (occurrence: None)
  Receive Date: 20120803
  Receipt Date: 20120723
  Transmission Date: 20120928
  Serious: Yes (Disabling, Other)
  Sender: FDA-Public Use
  Company Number: GB-RANBAXY-2012R1-58560

PATIENT
  Age: 75 Year
  Sex: Female

DRUGS (7)
  1. RAMIPRIL [Suspect]
     Indication: ACUTE CORONARY SYNDROME
     Dosage: UNK
     Route: 048
     Dates: start: 20120125, end: 20120530
  2. BECLOMETHASONE DIPROPIONATE [Concomitant]
     Indication: ASTHMA
     Dosage: 2 DF, BID
     Route: 048
  3. PERINDOPRIL ERBUMINE [Concomitant]
     Indication: CORONARY ARTERY DISEASE
     Dosage: UNK
     Route: 048
  4. CALCICHEW D3 [Concomitant]
     Indication: PRODUCT USED FOR UNKNOWN INDICATION
     Dosage: UNK
     Route: 048
  5. BENDROFLUMETHIAZIDE [Concomitant]
     Indication: PRODUCT USED FOR UNKNOWN INDICATION
     Dosage: UNK
     Route: 065
  6. RAMIPRIL [Suspect]
     Dosage: UNK
     Route: 048
  7. ALBUTEROL SULATE [Concomitant]
     Indication: ASTHMA
     Dosage: UNK
     Route: 055

REACTIONS (1)
  - OEDEMA PERIPHERAL [None]
